FAERS Safety Report 8175180-5 (Version None)
Quarter: 2012Q1

REPORT INFORMATION
  Report Type: 
  Country: None (occurrence: None)
  Receive Date: 20120229
  Receipt Date: 20120221
  Transmission Date: 20120608
  Serious: Yes (Other)
  Sender: FDA-Public Use
  Company Number: US-ABBOTT-12P-163-0907184-00

PATIENT
  Age: 65 Year
  Sex: Female

DRUGS (3)
  1. HUMIRA [Suspect]
     Indication: POLYCHONDRITIS
  2. CLONAZEPAM [Concomitant]
     Indication: ANXIETY
     Dosage: AT NIGHT, BUT TABLET IS BROKEN IN 1/2
  3. PEGASYS [Concomitant]
     Indication: HEPATITIS C

REACTIONS (11)
  - CARDIAC DISORDER [None]
  - PERIPHERAL ARTERIAL OCCLUSIVE DISEASE [None]
  - SLUGGISHNESS [None]
  - BONE PAIN [None]
  - ASTHENIA [None]
  - WHITE BLOOD CELL COUNT DECREASED [None]
  - ABASIA [None]
  - HEADACHE [None]
  - CATARACT [None]
  - PAIN [None]
  - HYPOAESTHESIA [None]
